FAERS Safety Report 11922139 (Version 3)
Quarter: 2016Q1

REPORT INFORMATION
  Report Type: Spontaneous
  Country: None (occurrence: US)
  Receive Date: 20160115
  Receipt Date: 20160218
  Transmission Date: 20160526
  Serious: Yes (Hospitalization)
  Sender: FDA-Public Use
  Company Number: US-CTI_01844_2015

PATIENT
  Age: 1 Year
  Sex: Male

DRUGS (8)
  1. AQUADEKS DROP [Concomitant]
     Indication: CYSTIC FIBROSIS
     Dosage: WITH FOOD
  2. ALBUTEROL. [Concomitant]
     Active Substance: ALBUTEROL
     Indication: CYSTIC FIBROSIS
     Dosage: 1 VIAL, 3 TIMES DAILY, EVERY 4 HOURS
     Route: 055
  3. RAMIDINE [Concomitant]
     Dosage: 75 MG/ML
  4. CREON [Concomitant]
     Active Substance: PANCRELIPASE AMYLASE\PANCRELIPASE LIPASE\PANCRELIPASE PROTEASE
     Indication: CYSTIC FIBROSIS
     Dosage: 3,000, GIVE 4 CAPSULES WITH FEEDINGS, 6-8 TIMES DAILY
  5. BETHKIS [Suspect]
     Active Substance: TOBRAMYCIN
     Indication: CYSTIC FIBROSIS
     Dosage: 300 MG/ 4 ML, BID
     Route: 055
     Dates: start: 20151214
  6. MONTELUSKAST [Concomitant]
     Indication: CYSTIC FIBROSIS
     Dosage: MIX 1 PACKET, AT BEDTIME
  7. PULMOZYME [Suspect]
     Active Substance: DORNASE ALFA
     Indication: CYSTIC FIBROSIS
     Dosage: 1 MG / 1 ML, BID
     Route: 055
     Dates: start: 20150313
  8. FLOVENT HFA [Concomitant]
     Active Substance: FLUTICASONE PROPIONATE
     Indication: CYSTIC FIBROSIS
     Dosage: 2 PUFFS, TWICE A DAY

REACTIONS (3)
  - Pyrexia [Unknown]
  - Product use issue [Not Recovered/Not Resolved]
  - Cough [Unknown]

NARRATIVE: CASE EVENT DATE: 20151214
